FAERS Safety Report 6042350-1 (Version None)
Quarter: 2009Q1

REPORT INFORMATION
  Report Type: 
  Country: None (occurrence: None)
  Receive Date: 20090116
  Receipt Date: 20090114
  Transmission Date: 20090719
  Serious: Yes (Death)
  Sender: FDA-Public Use
  Company Number: US-PURDUE-USA_2008_0036094

PATIENT
  Age: 38 Year
  Sex: Male
  Weight: 86 kg

DRUGS (3)
  1. MORPHINE SULFATE [Suspect]
     Indication: DRUG USE FOR UNKNOWN INDICATION
     Dosage: UNK MG, UNK
  2. ALPRAZOLAM [Suspect]
     Indication: DRUG USE FOR UNKNOWN INDICATION
     Dosage: UNK MG, UNK
  3. HYDROCODONE BITARTRATE [Suspect]
     Indication: DRUG USE FOR UNKNOWN INDICATION
     Dosage: UNK MG, UNK

REACTIONS (4)
  - DRUG TOXICITY [None]
  - HYPERTENSIVE HEART DISEASE [None]
  - MULTIPLE DRUG OVERDOSE [None]
  - UNRESPONSIVE TO STIMULI [None]
